FAERS Safety Report 10531470 (Version 3)
Quarter: 2015Q2

REPORT INFORMATION
  Report Type: Report from Study
  Country: AU (occurrence: AU)
  Receive Date: 20141021
  Receipt Date: 20150626
  Transmission Date: 20150821
  Serious: Yes (Death, Other)
  Sender: FDA-Public Use
  Company Number: PHHY2014AU134918

PATIENT
  Age: 32 Year
  Sex: Female

DRUGS (1)
  1. CLOZARIL [Suspect]
     Active Substance: CLOZAPINE
     Indication: SCHIZOPHRENIA
     Dosage: 300 OT (UNITS UNSPECIFIED)
     Route: 048
     Dates: start: 20100803

REACTIONS (6)
  - Toxicity to various agents [Unknown]
  - Completed suicide [Fatal]
  - Dyspnoea [Unknown]
  - Antipsychotic drug level below therapeutic [Recovered/Resolved]
  - Heart rate increased [Unknown]
  - Alcohol poisoning [Unknown]

NARRATIVE: CASE EVENT DATE: 20140804
